FAERS Safety Report 25908995 (Version 1)
Quarter: 2025Q4

REPORT INFORMATION
  Report Type: Spontaneous
  Country: US (occurrence: US)
  Receive Date: 20251011
  Receipt Date: 20251011
  Transmission Date: 20260117
  Serious: No
  Sender: AMNEAL
  Company Number: US-AMNEAL PHARMACEUTICALS-2025-AMRX-00539

PATIENT
  Sex: Male

DRUGS (1)
  1. LIDOCAINE [Suspect]
     Active Substance: LIDOCAINE
     Indication: Nerve injury
     Dosage: UNK
     Route: 062

REACTIONS (3)
  - Application site pain [Unknown]
  - Device adhesion issue [Unknown]
  - Wrong technique in device usage process [Unknown]
